FAERS Safety Report 4514812-7 (Version None)
Quarter: 2004Q4

REPORT INFORMATION
  Report Type: 
  Country: None (occurrence: None)
  Receive Date: 20041129
  Receipt Date: 20041129
  Transmission Date: 20050328
  Serious: Yes (Hospitalization)
  Sender: FDA-Public Use
  Company Number: None

PATIENT
  Age: 35 Year
  Sex: Male
  Weight: 74 kg

DRUGS (5)
  1. BEXTRA [Suspect]
     Indication: ARTHRITIS
     Dates: end: 20041014
  2. BEXTRA [Suspect]
     Indication: BACK PAIN
     Dates: end: 20041014
  3. ATENOLOL [Concomitant]
  4. HYDROCHLOROTHIAZIDE [Concomitant]
  5. ISRADIPINE [Concomitant]

REACTIONS (6)
  - ACUTE RESPIRATORY FAILURE [None]
  - ANEURYSM [None]
  - FAECES DISCOLOURED [None]
  - HAEMATEMESIS [None]
  - MELAENA [None]
  - THROMBOSIS [None]
